FAERS Safety Report 6803711-3 (Version None)
Quarter: 2010Q2

REPORT INFORMATION
  Report Type: 
  Country: None (occurrence: None)
  Receive Date: 20100628
  Receipt Date: 20100624
  Transmission Date: 20101027
  Serious: Yes (Other)
  Sender: FDA-Public Use
  Company Number: US-BAXTER-2010BH016871

PATIENT
  Age: 32 Year
  Sex: Male

DRUGS (2)
  1. VANCOMYCIN HCL [Suspect]
     Indication: PNEUMONIA
     Route: 065
  2. ZOSYN [Concomitant]
     Indication: PNEUMONIA
     Route: 065

REACTIONS (1)
  - LINEAR IGA DISEASE [None]
